FAERS Safety Report 20672984 (Version 1)
Quarter: 2022Q2

REPORT INFORMATION
  Report Type: Spontaneous
  Country: US (occurrence: None)
  Receive Date: 20220403
  Receipt Date: 20220403
  Transmission Date: 20220721
  Serious: No
  Sender: FDA-Public Use
  Company Number: None

PATIENT
  Age: 53 Year
  Sex: Male
  Weight: 102 kg

DRUGS (1)
  1. LISINOPRIL [Suspect]
     Active Substance: LISINOPRIL
     Indication: Hypertension
     Dosage: FREQUENCY : DAILY;?
     Route: 048
     Dates: end: 20211205

REACTIONS (6)
  - Swollen tongue [None]
  - Dysphagia [None]
  - Secretion discharge [None]
  - Dyspnoea [None]
  - Tonsillar hypertrophy [None]
  - Angioedema [None]

NARRATIVE: CASE EVENT DATE: 20211205
